FAERS Safety Report 6446193-6 (Version None)
Quarter: 2009Q4

REPORT INFORMATION
  Report Type: 
  Country: None (occurrence: None)
  Receive Date: 20091119
  Receipt Date: 20091112
  Transmission Date: 20100525
  Serious: Yes (Other)
  Sender: FDA-Public Use
  Company Number: US-JNJFOC-20091104369

PATIENT
  Sex: Female

DRUGS (5)
  1. DURAGESIC-100 [Suspect]
     Indication: PAIN
     Dosage: 6 X 100UG/HR PATCHES
     Route: 062
  2. DURAGESIC-100 [Suspect]
     Dosage: 6 X 100UG/HR PATCHES
     Route: 062
  3. PREVACID [Concomitant]
     Indication: GASTRIC DISORDER
     Route: 048
  4. COMPAZINE [Concomitant]
     Indication: NAUSEA
     Route: 048
  5. SENNA [Concomitant]
     Indication: LAXATIVE SUPPORTIVE CARE
     Route: 048

REACTIONS (5)
  - CHILLS [None]
  - DRUG INEFFECTIVE [None]
  - FALL [None]
  - MALAISE [None]
  - WRONG TECHNIQUE IN DRUG USAGE PROCESS [None]
